FAERS Safety Report 8559967-2 (Version None)
Quarter: 2012Q3

REPORT INFORMATION
  Report Type: 
  Country: None (occurrence: None)
  Receive Date: 20120802
  Receipt Date: 20120724
  Transmission Date: 20120928
  Serious: Yes (Other)
  Sender: FDA-Public Use
  Company Number: JP-009507513-1207JPN011046

PATIENT

DRUGS (3)
  1. REBETOL [Suspect]
     Dosage: DAILY DOSAGE UNKNOWN
     Route: 048
  2. [THERAPY UNSPECIFIED] [Concomitant]
     Dosage: DAILY DOSAGE UNKNOWN
     Route: 065
  3. PEG-INTRON [Suspect]
     Dosage: DAILY DOSAGE UNKNOWN
     Route: 058

REACTIONS (1)
  - RHABDOMYOLYSIS [None]
